FAERS Safety Report 4755371-3 (Version None)
Quarter: 2005Q3

REPORT INFORMATION
  Report Type: 
  Country: None (occurrence: None)
  Receive Date: 20050826
  Receipt Date: 20041229
  Transmission Date: 20060218
  Serious: Yes (Hospitalization, Other)
  Sender: FDA-Public Use
  Company Number: USA-2002-0000664

PATIENT
  Age: 51 Year
  Sex: Male
  Weight: 70.3 kg

DRUGS (8)
  1. OXYCONTIN [Suspect]
     Indication: PAIN
     Dosage: 20 MG, BID, ORAL
     Route: 048
     Dates: start: 19990701, end: 20020815
  2. AMBIEN [Concomitant]
  3. PERCOCET [Concomitant]
  4. ZANAFLEX [Concomitant]
  5. ROXICET [Concomitant]
  6. CELEBREX [Concomitant]
  7. DURAGESIC-100 [Concomitant]
  8. ACETAMINOPHEN AND HYDROCODONE BITARTRATE [Concomitant]

REACTIONS (12)
  - COUGH [None]
  - DRUG DEPENDENCE [None]
  - DRUG INEFFECTIVE [None]
  - DRUG WITHDRAWAL SYNDROME [None]
  - DYSURIA [None]
  - EXCORIATION [None]
  - FAILURE OF IMPLANT [None]
  - INSOMNIA [None]
  - PAIN [None]
  - POLLAKIURIA [None]
  - RASH [None]
  - THROMBOCYTOPENIA [None]
